FAERS Safety Report 8078022-1 (Version None)
Quarter: 2012Q1

REPORT INFORMATION
  Report Type: 
  Country: None (occurrence: None)
  Receive Date: 20120127
  Receipt Date: 20110107
  Transmission Date: 20120608
  Serious: No
  Sender: FDA-Public Use
  Company Number: US-ABBOTT-11P-163-0695870-00

PATIENT
  Sex: Female
  Weight: 69.008 kg

DRUGS (18)
  1. PREMARIN [Concomitant]
     Indication: HORMONE REPLACEMENT THERAPY
  2. FOLIC ACID [Concomitant]
     Indication: VITAMIN SUPPLEMENTATION
  3. VITAMIN D [Concomitant]
     Indication: VITAMIN SUPPLEMENTATION
  4. OMEPRAZOLE [Concomitant]
     Indication: GASTROOESOPHAGEAL REFLUX DISEASE
  5. ASCORBIC ACID [Concomitant]
     Indication: VITAMIN SUPPLEMENTATION
  6. CALCIUM CARBONATE [Concomitant]
     Indication: MINERAL SUPPLEMENTATION
  7. CYMBALTA [Concomitant]
     Indication: FIBROMYALGIA
  8. ENALAPRIL MALEATE [Concomitant]
     Indication: HYPERTENSION
  9. METHOTREXATE [Concomitant]
     Indication: RHEUMATOID ARTHRITIS
  10. ASPIRIN [Concomitant]
     Indication: CARDIOVASCULAR EVENT PROPHYLAXIS
  11. VITAMIN E [Concomitant]
     Indication: VITAMIN SUPPLEMENTATION
  12. CITALOPRAM HYDROBROMIDE [Concomitant]
     Indication: PRODUCT USED FOR UNKNOWN INDICATION
  13. LEVOXYL [Concomitant]
     Indication: HYPOTHYROIDISM
  14. TRAMADOL HCL [Concomitant]
     Indication: RHEUMATOID ARTHRITIS
     Dosage: AS NEEDED
  15. MULTI-VITAMINS [Concomitant]
     Indication: VITAMIN SUPPLEMENTATION
  16. VITAMIN B-12 [Concomitant]
     Indication: VITAMIN SUPPLEMENTATION
  17. HUMIRA [Suspect]
     Indication: RHEUMATOID ARTHRITIS
     Dates: start: 20101001
  18. CYCLOBENZAPRINE [Concomitant]
     Indication: POOR QUALITY SLEEP

REACTIONS (6)
  - INFLUENZA [None]
  - NASOPHARYNGITIS [None]
  - TONSILLAR HYPERTROPHY [None]
  - DYSPHONIA [None]
  - DRY SKIN [None]
  - COUGH [None]
